FAERS Safety Report 20217698 (Version 2)
Quarter: 2021Q4

REPORT INFORMATION
  Report Type: Spontaneous
  Country: FR (occurrence: FR)
  Receive Date: 20211222
  Receipt Date: 20211231
  Transmission Date: 20220304
  Serious: Yes (Life-Threatening)
  Sender: FDA-Public Use
  Company Number: None

PATIENT
  Age: 57 Year
  Sex: Male

DRUGS (10)
  1. FENTANYL [Suspect]
     Active Substance: FENTANYL
     Indication: Abdominal pain
     Dosage: 2 PATCHS?75 MICROGRAMS/HOUR
     Route: 062
     Dates: start: 20210729, end: 20210730
  2. FENTANYL [Suspect]
     Active Substance: FENTANYL
     Indication: Pain
  3. LORAZEPAM [Concomitant]
     Active Substance: LORAZEPAM
  4. QUETIAPINE [Concomitant]
     Active Substance: QUETIAPINE
     Dosage: 2 AT BEDTIME
  5. LOXAPINE [Concomitant]
     Active Substance: LOXAPINE
     Dosage: 1-1-1 + 2 AT BEDTIME
  6. DAFALGAN [Concomitant]
     Active Substance: ACETAMINOPHEN
     Dosage: 20 MG 2 MORNINGS
  7. PAROXETINE [Concomitant]
     Active Substance: PAROXETINE
     Dosage: 2 MORNINGS
  8. HYDROCHLOROTHIAZIDE\IRBESARTAN [Concomitant]
     Active Substance: HYDROCHLOROTHIAZIDE\IRBESARTAN
     Dosage: 150 MG/12.5 MG
  9. PROPRANOLOL [Concomitant]
     Active Substance: PROPRANOLOL HYDROCHLORIDE
     Dosage: 1/2 TABLET MORNINGS X2/DAY
  10. TRIHEXYPHENIDYL HYDROCHLORIDE [Concomitant]
     Active Substance: TRIHEXYPHENIDYL HYDROCHLORIDE
     Dosage: 1-0-1

REACTIONS (3)
  - Coma [Recovered/Resolved]
  - Toxicity to various agents [Recovered/Resolved]
  - Off label use [Recovered/Resolved]

NARRATIVE: CASE EVENT DATE: 20210730
